FAERS Safety Report 10610468 (Version 1)
Quarter: 2014Q4

REPORT INFORMATION
  Report Type: Spontaneous
  Country: US (occurrence: US)
  Receive Date: 20141126
  Receipt Date: 20141126
  Transmission Date: 20150529
  Serious: Yes (Other)
  Sender: FDA-Public Use
  Company Number: US-MALLINCKRODT-T201402318

PATIENT
  Age: 70 Year
  Sex: Female

DRUGS (2)
  1. GABLOFEN [Suspect]
     Active Substance: BACLOFEN
     Indication: MUSCLE SPASTICITY
     Dosage: 1170 MCG/DAY
     Route: 037
     Dates: start: 20140519
  2. GABLOFEN [Suspect]
     Active Substance: BACLOFEN
     Dosage: 1300 MCG/DAY
     Route: 037
     Dates: end: 20140519

REACTIONS (1)
  - Overdose [Unknown]

NARRATIVE: CASE EVENT DATE: 20140519
